FAERS Safety Report 13255109 (Version 1)
Quarter: 2017Q1

REPORT INFORMATION
  Report Type: Spontaneous
  Country: US (occurrence: US)
  Receive Date: 20170217
  Receipt Date: 20170217
  Transmission Date: 20170428
  Serious: Yes (Life-Threatening)
  Sender: FDA-Public Use
  Company Number: None

PATIENT
  Age: 7 Year
  Sex: Male
  Weight: 31.07 kg

DRUGS (1)
  1. TOPAMAX GENERIC [Suspect]
     Active Substance: TOPIRAMATE

REACTIONS (1)
  - Treatment failure [None]
